FAERS Safety Report 7742038-2 (Version None)
Quarter: 2011Q3

REPORT INFORMATION
  Report Type: 
  Country: None (occurrence: None)
  Receive Date: 20110912
  Receipt Date: 20110829
  Transmission Date: 20111222
  Serious: Yes (Other)
  Sender: FDA-Public Use
  Company Number: PHHY2011BR77850

PATIENT
  Sex: Male

DRUGS (4)
  1. DIOVAN [Suspect]
     Dosage: 320 MG (HALF TABLET), UNK
     Route: 048
  2. EXFORGE [Suspect]
     Dosage: 1 DF (160/5 MG), UNK
  3. LASIX [Suspect]
     Dosage: 20 MG (HALF TABLET) UNK
     Route: 048
  4. DIOVAN [Suspect]
     Dosage: 320 MG, UNK

REACTIONS (2)
  - BLOOD PRESSURE INCREASED [None]
  - OEDEMA PERIPHERAL [None]
